FAERS Safety Report 4480712-4 (Version None)
Quarter: 2004Q4

REPORT INFORMATION
  Report Type: 
  Country: None (occurrence: None)
  Receive Date: 20041018
  Receipt Date: 20041011
  Transmission Date: 20050328
  Serious: Yes (Other)
  Sender: FDA-Public Use
  Company Number: KR-JNJFOC-20041003594

PATIENT
  Age: 27 Year
  Sex: Female

DRUGS (1)
  1. EXTRA STRENGTH TYLENOL [Suspect]
     Indication: DYSMENORRHOEA
     Dosage: 1000 MG, 1 IN 1 TOTAL, ORAL
     Route: 048
     Dates: start: 20041011, end: 20041011

REACTIONS (5)
  - BLOOD PRESSURE INCREASED [None]
  - CHILLS [None]
  - DYSPNOEA [None]
  - LIP DISCOLOURATION [None]
  - PALLOR [None]
